FAERS Safety Report 15027253 (Version 3)
Quarter: 2018Q3

REPORT INFORMATION
  Report Type: Report from Study
  Country: US (occurrence: US)
  Receive Date: 20180619
  Receipt Date: 20180803
  Transmission Date: 20181010
  Serious: No
  Sender: FDA-Public Use
  Company Number: US-UNITED THERAPEUTICS-UNT-2018-008720

PATIENT
  Sex: Female
  Weight: 66.21 kg

DRUGS (7)
  1. UT?15C SR [Suspect]
     Active Substance: TREPROSTINIL DIOLAMINE
     Indication: PULMONARY HYPERTENSION
     Dosage: 0.125 MG, TID
     Route: 048
     Dates: start: 20180509
  2. UT?15C SR [Suspect]
     Active Substance: TREPROSTINIL DIOLAMINE
     Indication: PULMONARY ARTERIAL HYPERTENSION
     Dosage: UNK
     Route: 048
  3. UT?15C SR [Suspect]
     Active Substance: TREPROSTINIL DIOLAMINE
     Dosage: UNK
     Route: 048
  4. UT?15C SR [Suspect]
     Active Substance: TREPROSTINIL DIOLAMINE
     Dosage: 0.875 MG, TID
     Route: 048
  5. ADCIRCA [Concomitant]
     Active Substance: TADALAFIL
     Indication: PRODUCT USED FOR UNKNOWN INDICATION
     Route: 065
  6. UT?15C SR [Suspect]
     Active Substance: TREPROSTINIL DIOLAMINE
     Dosage: UNK
     Route: 048
  7. LETAIRIS [Concomitant]
     Active Substance: AMBRISENTAN
     Indication: PRODUCT USED FOR UNKNOWN INDICATION
     Route: 065

REACTIONS (2)
  - Nasal congestion [Unknown]
  - Diarrhoea [Not Recovered/Not Resolved]

NARRATIVE: CASE EVENT DATE: 2018
